FAERS Safety Report 6180744-4 (Version None)
Quarter: 2009Q2

REPORT INFORMATION
  Report Type: 
  Country: None (occurrence: None)
  Receive Date: 20090506
  Receipt Date: 20090424
  Transmission Date: 20091009
  Serious: Yes (Death, Hospitalization, Other)
  Sender: FDA-Public Use
  Company Number: US-PFIZER INC-2009198498

PATIENT
  Sex: Female
  Weight: 144 kg

DRUGS (8)
  1. SUTENT [Suspect]
     Indication: RENAL CELL CARCINOMA
     Dosage: 50 MG, 1X/DAY
     Route: 048
     Dates: start: 20090213, end: 20090101
  2. ASPIRIN [Concomitant]
     Dosage: 81 MG, 1X/DAY
     Route: 048
  3. CARVEDILOL [Concomitant]
     Dosage: 12.5 MG, 2X/DAY
     Route: 048
  4. FUROSEMIDE [Concomitant]
     Dosage: 40 MG, 2X/DAY
     Route: 048
  5. SIMVASTATIN [Concomitant]
     Dosage: 40 MG, UNK
  6. PROTONIX [Concomitant]
     Dosage: 40 MG, UNK
  7. PERCOCET [Concomitant]
  8. LANTUS [Suspect]

REACTIONS (6)
  - DISEASE PROGRESSION [None]
  - HEPATITIS [None]
  - MUSCULOSKELETAL CHEST PAIN [None]
  - NAUSEA [None]
  - RENAL CELL CARCINOMA [None]
  - VOMITING [None]
